FAERS Safety Report 8727598 (Version 2)
Quarter: 2012Q4

REPORT INFORMATION
  Report Type: 
  Country: US (occurrence: US)
  Receive Date: 20120816
  Receipt Date: 20120830
  Transmission Date: 20130627
  Serious: Yes (Other)
  Sender: FDA-Public Use
  Company Number: US-PFIZER INC-2012196061

PATIENT
  Age: 57 Year
  Sex: Male

DRUGS (4)
  1. VIAGRA [Suspect]
     Dosage: UNK
     Dates: start: 20090810
  2. VIAGRA [Suspect]
     Dosage: 50 mg, (1/2-1 tablet as directed)
     Route: 048
  3. ATENOLOL [Concomitant]
     Dosage: UNK
  4. TYLENOL [Concomitant]
     Dosage: UNK

REACTIONS (1)
  - Tonsil cancer [Unknown]
